FAERS Safety Report 18981563 (Version 2)
Quarter: 2021Q1

REPORT INFORMATION
  Report Type: Spontaneous
  Country: IT (occurrence: IT)
  Receive Date: 20210308
  Receipt Date: 20210323
  Transmission Date: 20210420
  Serious: Yes (Other)
  Sender: FDA-Public Use
  Company Number: IT-SAMSUNG BIOEPIS-SB-2021-05509

PATIENT
  Age: 60 Year
  Sex: Female
  Weight: 53 kg

DRUGS (2)
  1. ONTRUZANT [Suspect]
     Active Substance: TRASTUZUMAB-DTTB
     Indication: RECTAL ADENOCARCINOMA
     Route: 042
     Dates: start: 20210217, end: 20210217
  2. PERJETA [Concomitant]
     Active Substance: PERTUZUMAB
     Indication: RECTAL ADENOCARCINOMA
     Route: 042
     Dates: start: 20210217, end: 20210217

REACTIONS (8)
  - Infusion related reaction [Recovering/Resolving]
  - Chills [Recovering/Resolving]
  - Off label use [Recovering/Resolving]
  - Dyspnoea at rest [Recovering/Resolving]
  - Pyrexia [Recovering/Resolving]
  - Oxygen saturation decreased [Recovering/Resolving]
  - Blood pressure increased [Recovering/Resolving]
  - Heart rate increased [Recovering/Resolving]

NARRATIVE: CASE EVENT DATE: 20210217
